FAERS Safety Report 5332501-6 (Version None)
Quarter: 2007Q1

REPORT INFORMATION
  Report Type: 
  Country: None (occurrence: None)
  Receive Date: 20070306
  Receipt Date: 20060822
  Transmission Date: 20070707
  Serious: Yes (Other)
  Sender: FDA-Public Use
  Company Number: A03200605405

PATIENT

DRUGS (1)
  1. PLAVIX [Suspect]
     Dosage: 600 MG ONCE - ORAL
     Route: 048

REACTIONS (2)
  - PELVIC HAEMORRHAGE [None]
  - PRESCRIBED OVERDOSE [None]
